FAERS Safety Report 9954387 (Version 1)
Quarter: 2014Q1

REPORT INFORMATION
  Report Type: Spontaneous
  Country: GB (occurrence: GB)
  Receive Date: 20140304
  Receipt Date: 20140304
  Transmission Date: 20141002
  Serious: Yes (Other)
  Sender: FDA-Public Use
  Company Number: PHFR2014GB001793

PATIENT
  Age: 41 Year
  Sex: Male

DRUGS (6)
  1. TEGRETOL [Suspect]
     Indication: PARTIAL SEIZURES WITH SECONDARY GENERALISATION
     Dosage: 1000 MG, DAILY
     Route: 048
  2. TEGRETOL [Interacting]
     Dosage: 100 MG, TWICE PER DAY
     Route: 048
  3. TEGRETOL [Interacting]
     Dosage: 100 MG, DAILY
     Route: 048
     Dates: end: 20140101
  4. TEGRETOL [Interacting]
     Dosage: UNK UKN, UNK
     Route: 048
  5. LAMICTAL [Interacting]
     Indication: PARTIAL SEIZURES WITH SECONDARY GENERALISATION
     Dosage: 200 MG, TWICE PER DAY
     Route: 048
  6. LAMICTAL [Interacting]
     Dosage: 150 MG, TWICE PER DAY
     Route: 048

REACTIONS (12)
  - Toxicity to various agents [Not Recovered/Not Resolved]
  - Complex partial seizures [Not Recovered/Not Resolved]
  - Convulsion [Not Recovered/Not Resolved]
  - Anxiety [Recovering/Resolving]
  - Fear [Recovering/Resolving]
  - Delusional perception [Not Recovered/Not Resolved]
  - Feeling abnormal [Not Recovered/Not Resolved]
  - Insomnia [Not Recovered/Not Resolved]
  - Confusional state [Not Recovered/Not Resolved]
  - Hallucination [Not Recovered/Not Resolved]
  - Hallucination, visual [Unknown]
  - Drug interaction [Not Recovered/Not Resolved]
